FAERS Safety Report 13574631 (Version 2)
Quarter: 2017Q3

REPORT INFORMATION
  Report Type: Spontaneous
  Country: US (occurrence: US)
  Receive Date: 20170523
  Receipt Date: 20170719
  Transmission Date: 20171127
  Serious: No
  Sender: FDA-Public Use
  Company Number: US-ALEXION PHARMACEUTICALS INC.-A201705337

PATIENT
  Sex: Female

DRUGS (1)
  1. STRENSIQ [Suspect]
     Active Substance: ASFOTASE ALFA
     Indication: HYPOPHOSPHATASIA
     Route: 058

REACTIONS (8)
  - Ligament sprain [Unknown]
  - Blood alkaline phosphatase abnormal [Unknown]
  - Blood parathyroid hormone decreased [Unknown]
  - Skin irritation [Unknown]
  - Blood 25-hydroxycholecalciferol decreased [Unknown]
  - Laboratory test abnormal [Unknown]
  - Blood phosphorus increased [Unknown]
  - Dyspnoea [Unknown]

NARRATIVE: CASE EVENT DATE: 201610
